FAERS Safety Report 22140480 (Version 1)
Quarter: 2023Q1

REPORT INFORMATION
  Report Type: Spontaneous
  Country: US (occurrence: US)
  Receive Date: 20230327
  Receipt Date: 20230327
  Transmission Date: 20230417
  Serious: Yes (Other)
  Sender: FDA-Public Use
  Company Number: US-BAYER-2023A035121

PATIENT
  Age: 79 Year
  Sex: Male
  Weight: 100 kg

DRUGS (7)
  1. ASPIRIN [Suspect]
     Active Substance: ASPIRIN
     Indication: Product used for unknown indication
     Dosage: 81 MG
  2. JAKAFI [Suspect]
     Active Substance: RUXOLITINIB
     Indication: Polycythaemia vera
     Dosage: 15 MG, BID (TAKE 1 (5 MG) TABLET WITH ONE 15 MG TABLET EACH TIME)
     Route: 048
  3. JAKAFI [Suspect]
     Active Substance: RUXOLITINIB
     Indication: Polycythaemia vera
     Dosage: 20 UNK
     Route: 048
  4. MORNIFLUMATE [Concomitant]
     Active Substance: MORNIFLUMATE
  5. KEPPRA [Concomitant]
     Active Substance: LEVETIRACETAM
  6. PROAIR HFA [Concomitant]
     Active Substance: ALBUTEROL SULFATE
  7. PLANTAGO MAJOR LEAF [Concomitant]
     Active Substance: PLANTAGO MAJOR LEAF

REACTIONS (21)
  - Haemorrhage [None]
  - Deafness [None]
  - Rash macular [None]
  - Somnolence [None]
  - Energy increased [None]
  - Wound [None]
  - Abdominal pain [None]
  - Spleen disorder [None]
  - Abdominal tenderness [None]
  - Asthenia [None]
  - Early satiety [None]
  - Abdominal pain upper [None]
  - Urticaria [None]
  - Pruritus [None]
  - Constipation [None]
  - Contusion [None]
  - Increased tendency to bruise [None]
  - Weight increased [None]
  - Haematocrit decreased [None]
  - Haemoglobin decreased [None]
  - Red blood cell count decreased [None]
